FAERS Safety Report 8027857-X (Version None)
Quarter: 2012Q1

REPORT INFORMATION
  Report Type: 
  Country: None (occurrence: None)
  Receive Date: 20120106
  Receipt Date: 20111226
  Transmission Date: 20120608
  Serious: Yes (Life-Threatening, Hospitalization)
  Sender: FDA-Public Use
  Company Number: FR-EISAI INC-E2020-10038-SPO-FR

PATIENT
  Sex: Female

DRUGS (7)
  1. PAROXETINE HCL [Concomitant]
  2. ARICEPT [Suspect]
     Route: 048
     Dates: start: 20090101
  3. ARICEPT [Suspect]
     Route: 048
     Dates: end: 20111102
  4. VITAMIN B1 1MGM TAB [Concomitant]
  5. VITAMIN B6 [Concomitant]
  6. LITHIUM CARBONATE [Suspect]
     Route: 048
     Dates: start: 19800101, end: 20111102
  7. VALPROIC ACID [Suspect]
     Route: 048
     Dates: end: 20111102

REACTIONS (2)
  - RENAL FAILURE ACUTE [None]
  - GOODPASTURE'S SYNDROME [None]
